FAERS Safety Report 6585033-1 (Version None)
Quarter: 2010Q1

REPORT INFORMATION
  Report Type: 
  Country: None (occurrence: None)
  Receive Date: 20100204
  Receipt Date: 20100128
  Transmission Date: 20100710
  Serious: Yes (Life-Threatening, Hospitalization, Disabling, Other)
  Sender: FDA-Public Use
  Company Number: 2010-00113

PATIENT
  Age: 56 Year
  Sex: Female
  Weight: 78.0187 kg

DRUGS (10)
  1. MELOXICAM     TABLETS [Suspect]
     Indication: BACK PAIN
     Dosage: 15 MG (15 MG, 1 IN 24 HR), PER ORAL
     Route: 048
     Dates: start: 20080101, end: 20100127
  2. LIPITOR [Concomitant]
  3. PREVACID [Concomitant]
  4. LEVOTHYROXINE SODIUM [Concomitant]
  5. CARDIZEM CAPSULES [Concomitant]
  6. PROPAFENONE TAB [Concomitant]
  7. PROMETHAZINE TAB [Concomitant]
  8. NITRO-STAT SUBLINGUAL TAB [Concomitant]
  9. OXYCODONE HCL [Concomitant]
  10. CLONAZEPAM TAB [Concomitant]

REACTIONS (5)
  - ARRHYTHMIA [None]
  - CARDIAC DISORDER [None]
  - LARGE INTESTINE PERFORATION [None]
  - NERVOUS SYSTEM DISORDER [None]
  - PNEUMONIA [None]
